FAERS Safety Report 4463260-7 (Version None)
Quarter: 2004Q3

REPORT INFORMATION
  Report Type: 
  Country: None (occurrence: None)
  Receive Date: 20040930
  Receipt Date: 20040921
  Transmission Date: 20050211
  Serious: Yes (Other)
  Sender: FDA-Public Use
  Company Number: GB-GLAXOSMITHKLINE-B0346002A

PATIENT
  Age: 28 Year
  Sex: Female
  Weight: 90 kg

DRUGS (2)
  1. IMIGRAN [Suspect]
     Indication: MIGRAINE
     Dosage: 50MG PER DAY
     Route: 048
     Dates: start: 20040814, end: 20040814
  2. AMITRIPTYLINE HCL [Concomitant]
     Indication: MIGRAINE
     Dosage: 10MG PER DAY
     Route: 048
     Dates: start: 20040813

REACTIONS (3)
  - DISABILITY [None]
  - HEADACHE [None]
  - PAIN [None]
